FAERS Safety Report 6495142-3 (Version None)
Quarter: 2009Q4

REPORT INFORMATION
  Report Type: 
  Country: None (occurrence: None)
  Receive Date: 20091214
  Receipt Date: 20090520
  Transmission Date: 20100525
  Serious: No
  Sender: FDA-Public Use
  Company Number: US-BRISTOL-MYERS SQUIBB COMPANY-14613715

PATIENT
  Age: 24 Year
  Sex: Female
  Weight: 49 kg

DRUGS (4)
  1. ABILIFY [Suspect]
     Indication: BIPOLAR DISORDER
     Dates: start: 20090320, end: 20090401
  2. DEPAKOTE [Concomitant]
     Dosage: CHANGED TO EXTENDED RELEASE 500MG QAM AND 1000MG HS
  3. ATIVAN [Concomitant]
     Dosage: PRN UP TO TID (USUALLY TOOK A DOSE PER 24 HOURS)
  4. IRON SULFATETHIAMIN COMPOUND TAB [Concomitant]

REACTIONS (4)
  - ANXIETY [None]
  - INSOMNIA [None]
  - NEGATIVE THOUGHTS [None]
  - TREMOR [None]
